FAERS Safety Report 22079771 (Version 3)
Quarter: 2023Q1

REPORT INFORMATION
  Report Type: Spontaneous
  Country: CH (occurrence: CH)
  Receive Date: 20230309
  Receipt Date: 20230316
  Transmission Date: 20230418
  Serious: Yes (Other)
  Sender: FDA-Public Use
  Company Number: CH-MYLANLABS-2023M1025043

PATIENT
  Sex: Male

DRUGS (1)
  1. PREGABALIN [Suspect]
     Active Substance: PREGABALIN
     Indication: Product used for unknown indication
     Dosage: UNK
     Route: 065

REACTIONS (5)
  - Muscle tightness [Unknown]
  - Myoclonus [Unknown]
  - Gait disturbance [Unknown]
  - Drug intolerance [Unknown]
  - Therapy cessation [Unknown]
